FAERS Safety Report 7092467-8 (Version None)
Quarter: 2010Q4

REPORT INFORMATION
  Report Type: 
  Country: None (occurrence: None)
  Receive Date: 20101108
  Receipt Date: 20101108
  Transmission Date: 20110411
  Serious: Yes (Life-Threatening, Hospitalization, Disabling, Other)
  Sender: FDA-Public Use
  Company Number: None

PATIENT
  Sex: Female
  Weight: 61.2356 kg

DRUGS (1)
  1. GEODON [Suspect]
     Dosage: 2 FANNY SHOTS 8 DAYS 3X DAILY
     Dates: start: 20100703

REACTIONS (4)
  - DYSKINESIA [None]
  - MUSCLE SPASMS [None]
  - TIC [None]
  - TREMOR [None]
